FAERS Safety Report 16306430 (Version 1)
Quarter: 2019Q2

REPORT INFORMATION
  Report Type: Spontaneous
  Country: DE (occurrence: DE)
  Receive Date: 20190513
  Receipt Date: 20190513
  Transmission Date: 20190711
  Serious: Yes (Death)
  Sender: FDA-Public Use
  Company Number: PHHY2019DE107635

PATIENT
  Age: 32 Year
  Sex: Female

DRUGS (1)
  1. BISOPROLOL [Suspect]
     Active Substance: BISOPROLOL
     Indication: TACHYCARDIA
     Dosage: 1.25 MG, UNK (0-6+6 GESTATIONAL WEEK)
     Route: 065

REACTIONS (4)
  - Product use in unapproved indication [Unknown]
  - Arrhythmia [Fatal]
  - Maternal exposure during pregnancy [Unknown]
  - Premature delivery [Unknown]
